FAERS Safety Report 7190548-1 (Version None)
Quarter: 2010Q4

REPORT INFORMATION
  Report Type: 
  Country: None (occurrence: None)
  Receive Date: 20101223
  Receipt Date: 20101213
  Transmission Date: 20110411
  Serious: Yes (Hospitalization)
  Sender: FDA-Public Use
  Company Number: JP-AMGEN-JPNNI2010010851

PATIENT

DRUGS (11)
  1. CINACALCET HYDROCHLORIDE [Suspect]
     Indication: HYPERPARATHYROIDISM SECONDARY
     Dosage: 25 MG, QD
     Dates: start: 20080508, end: 20090416
  2. ADALAT CC [Concomitant]
     Dosage: 40 MG, QD
     Route: 048
  3. NORVASC [Concomitant]
     Dosage: 5 MG, QD
     Route: 048
  4. OLMETEC [Concomitant]
     Dosage: 20 MG, QD
     Route: 048
  5. CARDENALIN [Concomitant]
     Dosage: 8 MG, QD
     Route: 048
  6. ARTIST [Concomitant]
     Dosage: 20 MG, QD
     Route: 048
  7. ALDACTONE [Concomitant]
     Dosage: 25 MG, QD
     Route: 048
     Dates: end: 20090416
  8. NU LOTAN [Concomitant]
     Dosage: 25 MG, QD
     Route: 048
  9. RIZABEN [Concomitant]
     Dosage: 300 MG, QD
     Route: 048
     Dates: end: 20090305
  10. EPOGIN [Concomitant]
     Dosage: 6000 IU, QWK
     Dates: end: 20081204
  11. NESP [Concomitant]
     Dosage: UNK

REACTIONS (1)
  - REFLUX OESOPHAGITIS [None]
